FAERS Safety Report 4588372-9 (Version None)
Quarter: 2005Q1

REPORT INFORMATION
  Report Type: 
  Country: None (occurrence: None)
  Receive Date: 20050222
  Receipt Date: 20050210
  Transmission Date: 20050727
  Serious: Yes (Other)
  Sender: FDA-Public Use
  Company Number: US-BRISTOL-MYERS SQUIBB COMPANY-12856613

PATIENT
  Age: 57 Year
  Sex: Male

DRUGS (6)
  1. COAPROVEL TABS 150MG/12.5MG [Suspect]
     Indication: HYPERTENSION
     Route: 048
     Dates: start: 20041104, end: 20041119
  2. MICARDIS [Suspect]
     Dates: start: 20041214
  3. FLIXONASE [Concomitant]
     Route: 045
  4. PRIMPERAN TAB [Concomitant]
     Dates: start: 20041010
  5. BETAHISTINE DIHYDROCHLORIDE [Concomitant]
     Route: 048
     Dates: start: 20041010
  6. DICLOFENAC SODIUM [Concomitant]
     Route: 048
     Dates: start: 20041014

REACTIONS (1)
  - TINNITUS [None]
